FAERS Safety Report 24002107 (Version 2)
Quarter: 2024Q3

REPORT INFORMATION
  Report Type: Report from Study
  Country: US (occurrence: US)
  Receive Date: 20240622
  Receipt Date: 20240906
  Transmission Date: 20241017
  Serious: No
  Sender: BRISTOL MYERS SQUIBB
  Company Number: US-BRISTOL-MYERS SQUIBB COMPANY-2024-100446

PATIENT
  Age: 77 Year
  Sex: Female

DRUGS (4)
  1. ELIQUIS [Suspect]
     Active Substance: APIXABAN
     Indication: Atrial fibrillation
     Route: 048
     Dates: start: 20240601
  2. HYDROCHLOROTHIAZIDE [Suspect]
     Active Substance: HYDROCHLOROTHIAZIDE
     Indication: Product used for unknown indication
  3. LISINOPRIL [Suspect]
     Active Substance: LISINOPRIL
     Indication: Product used for unknown indication
  4. CHLORTHALIDONE [Concomitant]
     Active Substance: CHLORTHALIDONE
     Indication: Product used for unknown indication

REACTIONS (18)
  - Fatigue [Unknown]
  - Hypotension [Unknown]
  - Cough [Recovered/Resolved]
  - Cardiac disorder [Unknown]
  - Dizziness [Unknown]
  - Wound [Recovered/Resolved]
  - Contusion [Recovered/Resolved]
  - Dyspnoea [Unknown]
  - Disturbance in attention [Unknown]
  - Feeling abnormal [Unknown]
  - Blood pressure systolic decreased [Unknown]
  - Chromaturia [Unknown]
  - Fungal infection [Unknown]
  - Corrective lens user [Unknown]
  - Body height decreased [Unknown]
  - Weight fluctuation [Unknown]
  - Pruritus [Unknown]
  - Rash [Unknown]
